FAERS Safety Report 7159354-8 (Version None)
Quarter: 2010Q4

REPORT INFORMATION
  Report Type: 
  Country: None (occurrence: None)
  Receive Date: 20101214
  Receipt Date: 20100921
  Transmission Date: 20110411
  Serious: No
  Sender: FDA-Public Use
  Company Number: US-ASTRAZENECA-2010SE39611

PATIENT
  Age: 68 Year
  Sex: Female
  Weight: 90.7 kg

DRUGS (2)
  1. CRESTOR [Suspect]
     Indication: HYPERCHOLESTEROLAEMIA
     Route: 048
     Dates: start: 20100801
  2. CRESTOR [Suspect]
     Route: 048
     Dates: end: 20100821

REACTIONS (1)
  - DYSGEUSIA [None]
